FAERS Safety Report 8343738-6 (Version None)
Quarter: 2012Q2

REPORT INFORMATION
  Report Type: 
  Country: None (occurrence: None)
  Receive Date: 20120508
  Receipt Date: 20120508
  Transmission Date: 20120825
  Serious: Yes (Hospitalization)
  Sender: FDA-Public Use
  Company Number: None

PATIENT
  Age: 49 Year
  Sex: Male
  Weight: 68.946 kg

DRUGS (2)
  1. INCIVEK [Suspect]
     Indication: HEPATITIS C
     Dosage: OFF DRUG AT TIME OF EVENT
     Dates: start: 20120213, end: 20120330
  2. COPEGUS [Concomitant]
     Indication: HEPATITIS C
     Dosage: 400MG
     Route: 048
     Dates: start: 20120213, end: 20120416

REACTIONS (2)
  - DRUG RASH WITH EOSINOPHILIA AND SYSTEMIC SYMPTOMS [None]
  - SUPERINFECTION BACTERIAL [None]
